FAERS Safety Report 16495463 (Version 2)
Quarter: 2019Q3

REPORT INFORMATION
  Report Type: Spontaneous
  Country: US (occurrence: US)
  Receive Date: 20190628
  Receipt Date: 20190823
  Transmission Date: 20191004
  Serious: Yes (Hospitalization)
  Sender: FDA-Public Use
  Company Number: US-PARI RESPIRATORY EQUIPMENT, INC.-2019PAR00054

PATIENT
  Sex: Male

DRUGS (13)
  1. CIPROFLOXACIN. [Suspect]
     Active Substance: CIPROFLOXACIN
  2. CAYSTON [Suspect]
     Active Substance: AZTREONAM
  3. VITAMIN D [Concomitant]
     Active Substance: VITAMIN D NOS
  4. ORKAMBI [Suspect]
     Active Substance: IVACAFTOR\LUMACAFTOR
     Indication: CYSTIC FIBROSIS
     Dosage: 2 TABLETS, 2X/DAY (EVERY 12 HOURS)
     Route: 048
     Dates: start: 20181113
  5. CREON [Concomitant]
     Active Substance: PANCRELIPASE AMYLASE\PANCRELIPASE LIPASE\PANCRELIPASE PROTEASE
  6. FLONASE ALLERGY SPRAY [Concomitant]
  7. MONTELUKAST [Concomitant]
     Active Substance: MONTELUKAST SODIUM
  8. CEFDINIR. [Concomitant]
     Active Substance: CEFDINIR
  9. KITABIS PAK [Suspect]
     Active Substance: TOBRAMYCIN
     Indication: CYSTIC FIBROSIS
     Dosage: 5 ML, 2X/DAY
     Dates: start: 20181204
  10. KITABIS PAK [Suspect]
     Active Substance: TOBRAMYCIN
     Dosage: 5 ML, 2X/DAY (28 DAYS ON)
     Dates: start: 20180914
  11. PEDIASURE [Concomitant]
     Active Substance: VITAMINS
  12. PREDNISONE. [Concomitant]
     Active Substance: PREDNISONE
  13. FLUTICASONE PROPIONATE. [Concomitant]
     Active Substance: FLUTICASONE PROPIONATE

REACTIONS (5)
  - Hypersensitivity [Unknown]
  - Pyrexia [Recovered/Resolved]
  - Viral infection [Unknown]
  - Rash [Recovered/Resolved]
  - Urticaria [Recovered/Resolved]
